FAERS Safety Report 18422184 (Version 2)
Quarter: 2023Q4

REPORT INFORMATION
  Report Type: Spontaneous
  Country: US (occurrence: US)
  Receive Date: 20201023
  Receipt Date: 20231204
  Transmission Date: 20240110
  Serious: No
  Sender: FDA-Public Use
  Company Number: US-PFIZER INC-2018059668

PATIENT
  Age: 73 Year
  Sex: Female
  Weight: 55.79 kg

DRUGS (5)
  1. XELJANZ [Suspect]
     Active Substance: TOFACITINIB CITRATE
     Indication: Rheumatoid arthritis
     Dosage: 5 MG, TWICE A DAY
     Route: 048
  2. METHOTREXATE [Concomitant]
     Active Substance: METHOTREXATE
     Indication: Rheumatoid arthritis
     Dosage: 15 MG, WEEKLY (2.5MG TABLET, 6 TABLETS ONCE A WEEK BY MOUTH)
     Route: 048
  3. ESTRADIOL [Concomitant]
     Active Substance: ESTRADIOL
     Indication: Hormone therapy
     Dosage: 1.5 DF, DAILY ((1MG TABLET, ONE AND A HALF TABLETS BY MOUTH DAILY)
     Route: 048
  4. LEVOTHYROXINE [Concomitant]
     Active Substance: LEVOTHYROXINE
     Indication: Thyroid disorder
     Dosage: 112 UG, 1X/DAY (112MCG TABLET ONCE A DAY BY MOUTH)
     Route: 048
  5. ATORVASTATIN [Concomitant]
     Active Substance: ATORVASTATIN
     Indication: Blood cholesterol abnormal
     Dosage: 10 MG, 1X/DAY (10MG TABLET ONCE A DAY BY MOUTH)
     Route: 048

REACTIONS (2)
  - Mobility decreased [Unknown]
  - Off label use [Unknown]
